FAERS Safety Report 24268158 (Version 1)
Quarter: 2024Q3

REPORT INFORMATION
  Report Type: Spontaneous
  Country: US (occurrence: US)
  Receive Date: 20240830
  Receipt Date: 20240830
  Transmission Date: 20241017
  Serious: Yes (Other)
  Sender: DR REDDYS
  Company Number: None

PATIENT
  Age: 62 Year
  Sex: Male
  Weight: 93 kg

DRUGS (6)
  1. LEVOTHYROXINE [Suspect]
     Active Substance: LEVOTHYROXINE\LEVOTHYROXINE SODIUM
     Indication: Autoimmune hypothyroidism
  2. TIRZEPATIDE [Suspect]
     Active Substance: TIRZEPATIDE
     Indication: Obesity
     Dosage: 6 MONTHS PRIOR
  3. TIRZEPATIDE [Suspect]
     Active Substance: TIRZEPATIDE
     Dosage: DOSE WAS INCREASED AS SUGGESTED EVERY 4 WEEKS, UP TO 10MG
  4. TIRZEPATIDE [Suspect]
     Active Substance: TIRZEPATIDE
     Dosage: MAINTAINED A 10-MG DOSE FOR ANOTHER 2 MONTHS/UP TO 10MG
  5. INSULIN NOS [Concomitant]
     Active Substance: INSULIN NOS
     Indication: Obesity
     Dosage: MULTIPLE
  6. INSULIN NOS [Concomitant]
     Active Substance: INSULIN NOS
     Indication: Type 1 diabetes mellitus

REACTIONS (3)
  - Atrial fibrillation [Unknown]
  - Hyperthyroidism [Unknown]
  - Weight decreased [Unknown]
